FAERS Safety Report 17995272 (Version 7)
Quarter: 2023Q4

REPORT INFORMATION
  Report Type: Spontaneous
  Country: JP (occurrence: JP)
  Receive Date: 20200708
  Receipt Date: 20231211
  Transmission Date: 20240110
  Serious: Yes (Death, Hospitalization, Disabling, Other)
  Sender: FDA-Public Use
  Company Number: JP-MSD-M2020-12968

PATIENT
  Age: 64 Year
  Sex: Male
  Weight: 71 kg

DRUGS (4)
  1. KEYTRUDA [Suspect]
     Active Substance: PEMBROLIZUMAB
     Indication: Lung adenocarcinoma stage IV
     Dosage: 200 MILLIGRAM, Q3W
     Route: 041
     Dates: start: 20191121, end: 20200403
  2. ALIMTA [Suspect]
     Active Substance: PEMETREXED DISODIUM
     Indication: Lung adenocarcinoma stage IV
     Dosage: 900 MILLIGRAM, Q3W
     Route: 041
     Dates: start: 20191121, end: 20200403
  3. CISPLATIN [Suspect]
     Active Substance: CISPLATIN
     Indication: Lung adenocarcinoma stage IV
     Dosage: 130 MILLIGRAM, Q3W
     Route: 041
     Dates: start: 20191121, end: 20200130
  4. OLODATEROL HYDROCHLORIDE\TIOTROPIUM BROMIDE MONOHYDRATE [Concomitant]
     Active Substance: OLODATEROL HYDROCHLORIDE\TIOTROPIUM BROMIDE MONOHYDRATE
     Indication: Chronic obstructive pulmonary disease
     Dosage: ONCE A DAY, ONCE 2 INHALATION
     Route: 065
     Dates: end: 20201106

REACTIONS (3)
  - Optic neuritis [Not Recovered/Not Resolved]
  - Immune-mediated renal disorder [Recovered/Resolved]
  - Malignant neoplasm progression [Fatal]

NARRATIVE: CASE EVENT DATE: 20200501
